FAERS Safety Report 6542798-2 (Version None)
Quarter: 2010Q1

REPORT INFORMATION
  Report Type: 
  Country: None (occurrence: None)
  Receive Date: 20100114
  Receipt Date: 20100107
  Transmission Date: 20100710
  Serious: Yes (Hospitalization)
  Sender: FDA-Public Use
  Company Number: 2009US004260

PATIENT
  Age: 59 Year
  Sex: Male

DRUGS (9)
  1. ALEFACEPT (ALEFACEPT) INJECTION [Suspect]
     Indication: RENAL TRANSPLANT
     Dosage: 7.5 MG, TOTAL DOSE, IV NOS; 7.5 MG, TOTAL DOSE, IV NOS; 30 MG, EVERY OTHER WEEK, SUBCUTANEOUS
     Route: 042
     Dates: start: 20090930, end: 20090930
  2. ALEFACEPT (ALEFACEPT) INJECTION [Suspect]
     Indication: RENAL TRANSPLANT
     Dosage: 7.5 MG, TOTAL DOSE, IV NOS; 7.5 MG, TOTAL DOSE, IV NOS; 30 MG, EVERY OTHER WEEK, SUBCUTANEOUS
     Route: 042
     Dates: start: 20091003, end: 20091003
  3. ALEFACEPT (ALEFACEPT) INJECTION [Suspect]
     Indication: RENAL TRANSPLANT
     Dosage: 7.5 MG, TOTAL DOSE, IV NOS; 7.5 MG, TOTAL DOSE, IV NOS; 30 MG, EVERY OTHER WEEK, SUBCUTANEOUS
     Route: 042
     Dates: start: 20091008, end: 20091215
  4. PROGRAF [Suspect]
     Indication: RENAL TRANSPLANT
     Dosage: ORAL
     Route: 048
     Dates: start: 20091001
  5. CELLCEPT [Concomitant]
  6. VALCYTE [Concomitant]
  7. BACTRIM [Concomitant]
  8. PRILOSEC [Concomitant]
  9. SEPTRA [Concomitant]

REACTIONS (4)
  - BLOOD CULTURE POSITIVE [None]
  - FEBRILE NEUTROPENIA [None]
  - IATROGENIC INJURY [None]
  - STREPTOCOCCAL BACTERAEMIA [None]
